FAERS Safety Report 8471091-6 (Version None)
Quarter: 2012Q2

REPORT INFORMATION
  Report Type: 
  Country: None (occurrence: None)
  Receive Date: 20120627
  Receipt Date: 20120607
  Transmission Date: 20120825
  Serious: No
  Sender: FDA-Public Use
  Company Number: US-ASTRAZENECA-2011SE41537

PATIENT
  Age: 55 Year
  Sex: Female

DRUGS (19)
  1. PREMARIN [Concomitant]
     Dates: start: 20100330
  2. ALENDRONATE SODIUM [Concomitant]
     Indication: OSTEOPOROSIS
  3. TESSALON [Concomitant]
     Indication: COUGH
     Dosage: 100 MG TAKE ONE TO TWO PILLS EVERY 8 HRS AS NEEDED
     Dates: start: 20100330
  4. NEXIUM [Suspect]
     Indication: GASTROOESOPHAGEAL REFLUX DISEASE
     Dosage: ONCE PER DAY
     Route: 048
     Dates: start: 20010101, end: 20110101
  5. SINGULAIR [Concomitant]
     Route: 048
     Dates: start: 20100330
  6. PREVACID [Concomitant]
     Dates: start: 20010101
  7. ZANTAC [Concomitant]
  8. NARCO [Concomitant]
     Indication: PAIN
     Dosage: 10MG-325 MG TAKE 1/2-1 EVERY SIX HOURS AS NEEDED
     Dates: start: 20100330
  9. FISH OIL [Concomitant]
     Dates: start: 20100330
  10. PRAVASTATIN SODIUM [Concomitant]
     Dates: start: 20100330
  11. REGLAN [Concomitant]
     Dates: start: 20100330
  12. LEVROXYL [Concomitant]
  13. NEXIUM [Suspect]
     Route: 048
     Dates: start: 20100330
  14. PRILOSEC [Concomitant]
  15. GABAPENTIN [Concomitant]
     Indication: ANALGESIC THERAPY
  16. CYMBALTA [Concomitant]
     Dates: start: 20100330
  17. CLARITIN [Concomitant]
     Indication: HYPERSENSITIVITY
     Dates: start: 20100330
  18. SINGULAIR [Concomitant]
  19. PREDNISONE TAB [Concomitant]
     Dates: start: 20100330

REACTIONS (10)
  - ANXIETY [None]
  - MULTIPLE FRACTURES [None]
  - BONE DENSITY DECREASED [None]
  - FALL [None]
  - DEPRESSION [None]
  - FIBROMYALGIA [None]
  - BONE DISORDER [None]
  - EMOTIONAL DISTRESS [None]
  - OSTEOPOROSIS [None]
  - MYALGIA [None]
